FAERS Safety Report 15982711 (Version 1)
Quarter: 2019Q1

REPORT INFORMATION
  Report Type: Spontaneous
  Country: PK (occurrence: PK)
  Receive Date: 20190219
  Receipt Date: 20190219
  Transmission Date: 20190418
  Serious: Yes (Other)
  Sender: FDA-Public Use
  Company Number: PHHY2019PK036109

PATIENT
  Age: 38 Year
  Sex: Female
  Weight: 44.9 kg

DRUGS (13)
  1. BEDAQUILINE [Suspect]
     Active Substance: BEDAQUILINE
     Indication: TUBERCULOSIS
     Dosage: 200 MG, QD
     Route: 048
     Dates: start: 20181219
  2. VITAMIN B6 [Concomitant]
     Active Substance: PYRIDOXINE HYDROCHLORIDE
     Indication: NEUROPATHY PERIPHERAL
     Dosage: UNK
     Route: 065
     Dates: start: 20180505
  3. PYRAZINAMIDE. [Suspect]
     Active Substance: PYRAZINAMIDE
     Dosage: UNK
     Route: 065
     Dates: start: 201602, end: 201709
  4. ETHIONAMIDE [Suspect]
     Active Substance: ETHIONAMIDE
     Dosage: 500 MG, QD
     Route: 048
     Dates: start: 20180507
  5. DELAMANID [Suspect]
     Active Substance: DELAMANID
     Indication: TUBERCULOSIS
     Dosage: 200 MG, QD
     Route: 048
     Dates: start: 20180507
  6. CYCLOSERINE. [Suspect]
     Active Substance: CYCLOSERINE
     Indication: TUBERCULOSIS
     Dosage: UNK
     Route: 065
     Dates: start: 201606, end: 201709
  7. CLOFAZIMINE [Suspect]
     Active Substance: CLOFAZIMINE
     Indication: TUBERCULOSIS
     Dosage: 100 MG, QD
     Route: 048
     Dates: start: 20180608
  8. PYRAZINAMIDE. [Suspect]
     Active Substance: PYRAZINAMIDE
     Indication: TUBERCULOSIS
     Dosage: UNK
     Route: 065
     Dates: start: 200601, end: 200606
  9. PYRAZINAMIDE. [Suspect]
     Active Substance: PYRAZINAMIDE
     Dosage: 1000 MG, QD
     Route: 048
     Dates: start: 20180507
  10. ETHIONAMIDE [Suspect]
     Active Substance: ETHIONAMIDE
     Indication: TUBERCULOSIS
     Dosage: UNK
     Route: 065
     Dates: start: 201602, end: 201709
  11. PYRAZINAMIDE. [Suspect]
     Active Substance: PYRAZINAMIDE
     Dosage: UNK
     Route: 065
     Dates: start: 201508, end: 201602
  12. LINEZOLID. [Suspect]
     Active Substance: LINEZOLID
     Indication: TUBERCULOSIS
     Dosage: 600 MG, QD
     Route: 048
     Dates: start: 20180507
  13. CYCLOSERINE. [Suspect]
     Active Substance: CYCLOSERINE
     Dosage: 500 MG, QD
     Route: 048
     Dates: start: 20180507

REACTIONS (2)
  - Incorrect product administration duration [Unknown]
  - Wolff-Parkinson-White syndrome [Unknown]

NARRATIVE: CASE EVENT DATE: 20181017
